FAERS Safety Report 8286426-7 (Version None)
Quarter: 2012Q2

REPORT INFORMATION
  Report Type: 
  Country: None (occurrence: None)
  Receive Date: 20120411
  Receipt Date: 20120330
  Transmission Date: 20120825
  Serious: Yes (Other)
  Sender: FDA-Public Use
  Company Number: AUR-APL-2012-01690

PATIENT
  Age: 25 Year
  Sex: Female

DRUGS (1)
  1. FINASTERIDE [Suspect]
     Indication: ALOPECIA
     Dosage: OTHER
     Route: 048

REACTIONS (4)
  - EXPOSURE VIA PARTNER [None]
  - PREGNANCY [None]
  - ABORTION SPONTANEOUS [None]
  - PREMATURE LABOUR [None]
